FAERS Safety Report 4551363-8 (Version None)
Quarter: 2005Q1

REPORT INFORMATION
  Report Type: 
  Country: None (occurrence: None)
  Receive Date: 20050110
  Receipt Date: 20041227
  Transmission Date: 20050727
  Serious: Yes (Death)
  Sender: FDA-Public Use
  Company Number: 211353

PATIENT
  Age: 73 Year
  Sex: Male

DRUGS (7)
  1. RITUXAN [Suspect]
     Indication: LYMPHOMA
     Dosage: 600 MG, INTRAVENOUS
     Route: 042
     Dates: start: 20030623, end: 20031015
  2. FLUDARABINE PHOSPHATE [Suspect]
     Indication: LYMPHOMA
     Dosage: 30 MG, INTRAVENOUS
     Route: 042
     Dates: start: 20030624, end: 20030816
  3. MITOXANTRONE [Suspect]
     Indication: LYMPHOMA
     Dosage: 10 MG, INTRAVENOUS
     Route: 042
     Dates: start: 20030624, end: 20031016
  4. DEXAMETHASONE [Suspect]
     Indication: LYMPHOMA
     Dosage: 20 MG, INTRAVENOUS
     Route: 042
     Dates: start: 20030624, end: 20031020
  5. CYCLOPHOSPHAMIDE [Concomitant]
  6. VINCRISTINE [Concomitant]
  7. PREDNISONE [Concomitant]

REACTIONS (6)
  - APHASIA [None]
  - BONE MARROW DEPRESSION [None]
  - HEMIPARESIS [None]
  - PROGRESSIVE MULTIFOCAL LEUKOENCEPHALOPATHY [None]
  - PYREXIA [None]
  - RESPIRATORY FAILURE [None]
